FAERS Safety Report 19041415 (Version 1)
Quarter: 2021Q1

REPORT INFORMATION
  Report Type: Spontaneous
  Country: US (occurrence: US)
  Receive Date: 20210323
  Receipt Date: 20210323
  Transmission Date: 20210420
  Serious: Yes (Other)
  Sender: FDA-Public Use
  Company Number: US-CADILA HEALTHCARE LIMITED-US-ZYDUS-063007

PATIENT

DRUGS (3)
  1. PROPRANOLOL [Suspect]
     Active Substance: PROPRANOLOL HYDROCHLORIDE
     Indication: BASEDOW^S DISEASE
     Dosage: 320 MILLIGRAM (80 MILLIGRAM EVERY 6 HOURS)
     Route: 065
  2. DEXAMETHASONE. [Concomitant]
     Active Substance: DEXAMETHASONE
     Indication: BASEDOW^S DISEASE
     Dosage: UNK
     Route: 065
  3. METHIMAZOLE. [Concomitant]
     Active Substance: METHIMAZOLE
     Indication: BASEDOW^S DISEASE
     Dosage: UNK
     Route: 065

REACTIONS (4)
  - Overdose [Unknown]
  - Cardiac arrest [Unknown]
  - Bradyarrhythmia [Unknown]
  - Ventricular fibrillation [Unknown]
